FAERS Safety Report 8414905-8 (Version None)
Quarter: 2012Q2

REPORT INFORMATION
  Report Type: 
  Country: None (occurrence: None)
  Receive Date: 20120601
  Receipt Date: 20120601
  Transmission Date: 20120825
  Serious: No
  Sender: FDA-Public Use
  Company Number: None

PATIENT
  Sex: Female

DRUGS (3)
  1. COREG [Suspect]
     Indication: CARDIAC FAILURE CONGESTIVE
     Dosage: COREG 25MG PO BID LIFELONG
     Route: 048
  2. ALDACTONE [Concomitant]
  3. ASPIRIN [Concomitant]

REACTIONS (2)
  - VASCULAR INSUFFICIENCY [None]
  - PRODUCT SUBSTITUTION ISSUE [None]
